FAERS Safety Report 13942839 (Version 1)
Quarter: 2017Q3

REPORT INFORMATION
  Report Type: Spontaneous
  Country: US (occurrence: US)
  Receive Date: 20170906
  Receipt Date: 20170906
  Transmission Date: 20171127
  Serious: No
  Sender: FDA-Public Use
  Company Number: US-009507513-1709USA001030

PATIENT
  Sex: Male

DRUGS (1)
  1. FOLLISTIM [Suspect]
     Active Substance: FOLLITROPIN

REACTIONS (2)
  - Product quality issue [Unknown]
  - Accidental exposure to product [Unknown]
